FAERS Safety Report 7487678-3 (Version None)
Quarter: 2011Q2

REPORT INFORMATION
  Report Type: 
  Country: None (occurrence: None)
  Receive Date: 20110518
  Receipt Date: 20110502
  Transmission Date: 20111010
  Serious: Yes (Hospitalization, Other)
  Sender: FDA-Public Use
  Company Number: US-BAYER-200924130NA

PATIENT
  Age: 66 Year
  Sex: Male
  Weight: 70 kg

DRUGS (36)
  1. ACETYLSALICYLIC ACID SRT [Concomitant]
     Dosage: 325 MG, QD
     Route: 048
  2. FERROUS GLUCONATE [Concomitant]
     Dosage: 300 MG, BID
     Route: 048
  3. COLACE [Concomitant]
     Dosage: 100 MG, QD
     Route: 048
  4. ATROPINE [Concomitant]
     Dosage: UNK
     Route: 042
     Dates: start: 20030124, end: 20030124
  5. MILRINONE [Concomitant]
     Dosage: UNK
     Route: 042
     Dates: start: 20030124
  6. EPINEPHRINE [Concomitant]
     Dosage: 0.5 MCG/MIN, UNK
     Route: 042
     Dates: start: 20030124
  7. HEPARIN [Concomitant]
     Dosage: UNK
     Dates: start: 20030124, end: 20030124
  8. TRASYLOL [Suspect]
     Indication: MITRAL VALVE REPAIR
     Dosage: 200 MG, ONCE
     Route: 042
     Dates: start: 20030124, end: 20030124
  9. MIDAZOLAM HCL [Concomitant]
     Dosage: 2 MG, BOLUS CONTINUOUSLY
     Route: 042
     Dates: start: 20030124, end: 20030124
  10. FENTANYL [Concomitant]
     Dosage: 100 MCG/HR, UNK
     Route: 042
     Dates: start: 20030124
  11. PLASMALYTE [GLUCOSE,POTASSIUM CHLORIDE] [Concomitant]
     Dosage: UNK
     Dates: start: 20030124, end: 20030124
  12. RED BLOOD CELLS [Concomitant]
     Dosage: 1 U, UNK
     Dates: start: 20030124, end: 20030124
  13. RED BLOOD CELLS [Concomitant]
     Dosage: 4 U, UNK
     Dates: start: 20030124, end: 20030124
  14. PLATELETS [Concomitant]
     Dosage: 3 U, UNK
     Dates: start: 20030124, end: 20030124
  15. TRASYLOL [Suspect]
     Dosage: 50CC-100CC/HR, UNK
     Route: 042
     Dates: start: 20030124, end: 20030124
  16. ENALAPRIL MALEATE [Concomitant]
     Dosage: 2.5 MG, QD
     Route: 048
     Dates: start: 20030116
  17. HUMIBID L.A. [Concomitant]
     Dosage: 1200 MG, BID
  18. LASIX [Concomitant]
     Dosage: 40 MG, UNK
     Route: 042
  19. VECURONIUM BROMIDE [Concomitant]
     Dosage: UNK
     Route: 042
     Dates: start: 20030124, end: 20030124
  20. CEFUROXIME [Concomitant]
     Dosage: UNK
     Route: 042
     Dates: start: 20030124, end: 20030124
  21. PAPAVERINE [Concomitant]
     Dosage: 2 ML, UNK
     Dates: start: 20030124, end: 20030124
  22. AUGMENTIN [Concomitant]
     Dosage: 2 TABS, BID
     Route: 048
  23. SIMVASTATIN [Concomitant]
     Dosage: 40 MG, QD
     Route: 048
  24. THROMBIN LOCAL SOLUTION [Concomitant]
     Dosage: 20,000 UNK, UNK
     Route: 061
     Dates: start: 20030124, end: 20030124
  25. METOPROLOL SUCCINATE [Concomitant]
     Dosage: 25 MG, BID
     Route: 048
  26. ETOMIDATE [Concomitant]
     Dosage: UNK
     Route: 042
     Dates: start: 20030124, end: 20030124
  27. PROTAMINE SULFATE [Concomitant]
     Dosage: 250 MG, UNK
     Route: 042
     Dates: start: 20030124, end: 20030124
  28. OPTIRAY 300 [Concomitant]
     Dosage: 130 ML, UNK
     Dates: start: 20030117
  29. ALDACTONE [Concomitant]
     Route: 048
  30. QUININE SULFATE [Concomitant]
     Dosage: 260 MG, HS
     Route: 048
  31. CEFAZOLIN [Concomitant]
     Dosage: 1 G, UNK
     Dates: start: 20030124, end: 20030124
  32. FRESH FROZEN PLASMA [Concomitant]
     Dosage: 3 U, UNK
     Dates: start: 20030124, end: 20030124
  33. TRASYLOL [Suspect]
     Indication: CORONARY ARTERY BYPASS
     Dosage: 1 ML, ONCE
     Route: 042
     Dates: start: 20030124, end: 20030124
  34. FRESH FROZEN PLASMA [Concomitant]
     Dosage: 3 U, UNK
     Dates: start: 20030124, end: 20030124
  35. BACITRACIN [Concomitant]
     Dosage: 25000 U, UNK
     Route: 061
     Dates: start: 20030124, end: 20030124
  36. PLATELETS [Concomitant]

REACTIONS (12)
  - FEAR [None]
  - INJURY [None]
  - RENAL IMPAIRMENT [None]
  - RENAL INJURY [None]
  - EMOTIONAL DISTRESS [None]
  - ANXIETY [None]
  - STRESS [None]
  - UNEVALUABLE EVENT [None]
  - PAIN [None]
  - ANHEDONIA [None]
  - MULTI-ORGAN FAILURE [None]
  - RENAL FAILURE [None]
